FAERS Safety Report 9997729 (Version 1)
Quarter: 2014Q1

REPORT INFORMATION
  Report Type: Spontaneous
  Country: US (occurrence: None)
  Receive Date: 20140225
  Receipt Date: 20140225
  Transmission Date: 20141002
  Serious: Yes (Hospitalization)
  Sender: FDA-Public Use
  Company Number: 2013-US-003492

PATIENT
  Age: 58 Year
  Sex: Female

DRUGS (3)
  1. PRIALT [Suspect]
     Indication: PAIN
     Route: 037
     Dates: end: 201308
  2. FENTANYL [Suspect]
     Indication: PAIN
     Route: 037
     Dates: end: 201308
  3. CLONIDINE [Suspect]
     Indication: PAIN
     Route: 037
     Dates: end: 201308

REACTIONS (3)
  - Device related infection [None]
  - Pain [None]
  - Device issue [None]
